FAERS Safety Report 11099710 (Version 1)
Quarter: 2015Q2

REPORT INFORMATION
  Report Type: Spontaneous
  Country: GB (occurrence: None)
  Receive Date: 20150506
  Receipt Date: 20150506
  Transmission Date: 20150821
  Serious: Yes (Other)
  Sender: FDA-Public Use
  Company Number: BR-TORRENT-00002903

PATIENT
  Age: 34 Year
  Sex: Female

DRUGS (4)
  1. QUEROPAX [Concomitant]
     Active Substance: QUETIAPINE FUMARATE
  2. CICLO 21 [Concomitant]
  3. RIVOTRIL [Concomitant]
     Active Substance: CLONAZEPAM
  4. VENLIFT OD (INN:VENLAFAXINE HYDROCHLORIDE) [Suspect]
     Active Substance: VENLAFAXINE HYDROCHLORIDE
     Indication: DEPRESSION
     Route: 048
     Dates: start: 20150414

REACTIONS (17)
  - Fatigue [None]
  - Renal pain [None]
  - Increased appetite [None]
  - Palpitations [None]
  - Faeces hard [None]
  - Sedation [None]
  - Abnormal dreams [None]
  - Haematochezia [None]
  - Dizziness [None]
  - Visual impairment [None]
  - Pollakiuria [None]
  - Hyperacusis [None]
  - Weight increased [None]
  - Asthenia [None]
  - Swelling [None]
  - Somnolence [None]
  - Disorientation [None]

NARRATIVE: CASE EVENT DATE: 20150419
